FAERS Safety Report 21140602 (Version 1)
Quarter: 2022Q3

REPORT INFORMATION
  Report Type: Spontaneous
  Country: IT (occurrence: IT)
  Receive Date: 20220728
  Receipt Date: 20220728
  Transmission Date: 20221027
  Serious: Yes (Other)
  Sender: FDA-Public Use
  Company Number: IT-MINISAL02-874885

PATIENT
  Age: 73 Year
  Sex: Female

DRUGS (5)
  1. CEFIXIME [Suspect]
     Active Substance: CEFIXIME
     Indication: Respiratory tract infection viral
     Dosage: 400 MILLIGRAM
     Route: 048
     Dates: start: 20220228, end: 20220304
  2. AZARGA [Concomitant]
     Active Substance: BRINZOLAMIDE\TIMOLOL MALEATE
  3. LUMIGAN [Concomitant]
     Active Substance: BIMATOPROST
  4. PAROXETINE HYDROCHLORIDE [Concomitant]
     Active Substance: PAROXETINE HYDROCHLORIDE
  5. TAVOR [Concomitant]

REACTIONS (1)
  - Hepatotoxicity [Not Recovered/Not Resolved]

NARRATIVE: CASE EVENT DATE: 20220304
